FAERS Safety Report 4987237-8 (Version None)
Quarter: 2006Q2

REPORT INFORMATION
  Report Type: 
  Country: None (occurrence: None)
  Receive Date: 20060501
  Receipt Date: 20051229
  Transmission Date: 20061013
  Serious: Yes (Death)
  Sender: FDA-Public Use
  Company Number: US-MERCK-0512USA04051

PATIENT
  Age: 63 Year
  Sex: Female
  Weight: 117 kg

DRUGS (13)
  1. VIOXX [Suspect]
     Indication: ARTHRALGIA
     Route: 048
     Dates: start: 20000609, end: 20031209
  2. VIOXX [Suspect]
     Indication: OSTEOARTHRITIS
     Route: 048
     Dates: start: 20000609, end: 20031209
  3. DIFLUCAN [Concomitant]
     Indication: FUNGAL INFECTION
     Route: 065
  4. CYCLOBENZAPRINE HYDROCHLORIDE [Concomitant]
     Route: 065
  5. ATENOLOL [Concomitant]
     Indication: CARDIAC DISORDER
     Route: 065
  6. PREDNISONE [Concomitant]
     Indication: ARTHRITIS
     Route: 065
  7. LIPITOR [Concomitant]
     Indication: BLOOD CHOLESTEROL INCREASED
     Route: 065
  8. LOTREL [Concomitant]
     Indication: HYPERTENSION
     Route: 065
  9. SPORANOX [Concomitant]
     Indication: FUNGAL INFECTION
     Route: 065
  10. OMEPRAZOLE [Concomitant]
     Route: 065
  11. PRILOSEC [Concomitant]
     Indication: GASTROOESOPHAGEAL REFLUX DISEASE
     Route: 065
  12. RHINOCORT [Concomitant]
     Indication: HYPERSENSITIVITY
     Route: 065
  13. PREMPRO [Concomitant]
     Indication: HORMONE REPLACEMENT THERAPY
     Route: 065

REACTIONS (3)
  - CARDIAC FAILURE [None]
  - CORONARY ARTERY THROMBOSIS [None]
  - FIBROMYALGIA [None]
